FAERS Safety Report 20884860 (Version 2)
Quarter: 2022Q4

REPORT INFORMATION
  Report Type: Spontaneous
  Country: US (occurrence: US)
  Receive Date: 20220527
  Receipt Date: 20221118
  Transmission Date: 20230113
  Serious: Yes (Hospitalization)
  Sender: FDA-Public Use
  Company Number: US-Fresenius Medical Care Renal Therapies Group-FMC-2205-000731

PATIENT
  Age: 88 Year
  Sex: Male
  Weight: 77 kg

DRUGS (24)
  1. DELFLEX WITH DEXTROSE 1.5% LOW MAGNESIUM LOW CALCIUM [Suspect]
     Active Substance: CALCIUM CHLORIDE\DEXTROSE\MAGNESIUM CHLORIDE\SODIUM CHLORIDE\SODIUM LACTATE
     Indication: End stage renal disease
     Dosage: EXCHANGES 3, FILL VOLUME 2300 ML, DWELL TIME 3 HOURS 17 MINUTES, LAST FILL NONE, DAYTIME DWELL NONE
     Route: 033
  2. DELFLEX WITH DEXTROSE 2.5% LOW MAGNESIUM LOW CALCIUM [Suspect]
     Active Substance: CALCIUM CHLORIDE\DEXTROSE\MAGNESIUM CHLORIDE\SODIUM CHLORIDE\SODIUM LACTATE
     Indication: End stage renal disease
     Dosage: EXCHANGES 3, FILL VOLUME 2300 ML, DWELL TIME 3 HOURS 17 MINUTES, LAST FILL NONE, DAYTIME DWELL NONE
     Route: 033
  3. DELFLEX WITH DEXTROSE 4.25% LOW MAGNESIUM LOW CALCIUM [Suspect]
     Active Substance: CALCIUM CHLORIDE\DEXTROSE\MAGNESIUM CHLORIDE\SODIUM CHLORIDE\SODIUM LACTATE
     Indication: End stage renal disease
     Dosage: EXCHANGES 3, FILL VOLUME 2300 ML, DWELL TIME 3 HOURS 17 MINUTES, LAST FILL NONE, DAYTIME DWELL NONE
     Route: 033
  4. AMLODIPINE [Concomitant]
     Active Substance: AMLODIPINE BESYLATE
  5. ASPIRIN [Concomitant]
     Active Substance: ASPIRIN
  6. ATORVASTATIN [Concomitant]
     Active Substance: ATORVASTATIN
  7. BUMETANIDE [Concomitant]
     Active Substance: BUMETANIDE
  8. CALCIUM CARBONATE [Concomitant]
     Active Substance: CALCIUM CARBONATE
  9. CARVEDILOL [Concomitant]
     Active Substance: CARVEDILOL
  10. CHLORPROMAZINE [Concomitant]
     Active Substance: CHLORPROMAZINE
  11. FINASTERIDE [Concomitant]
     Active Substance: FINASTERIDE
  12. GENTAMICIN [Concomitant]
     Active Substance: GENTAMICIN
  13. LORATADINE [Concomitant]
     Active Substance: LORATADINE
  14. MIRALAX [Concomitant]
     Active Substance: POLYETHYLENE GLYCOL 3350
  15. FLUOXETINE [Concomitant]
     Active Substance: FLUOXETINE HYDROCHLORIDE
  16. VITAMIN B COMPLEX [Concomitant]
     Active Substance: CYANOCOBALAMIN\DEXPANTHENOL\NIACINAMIDE\PYRIDOXINE HYDROCHLORIDE\RIBOFLAVIN 5^-PHOSPHATE SODIUM\THIA
  17. FOLIC ACID [Concomitant]
     Active Substance: FOLIC ACID
  18. AMOXICILLIN [Concomitant]
     Active Substance: AMOXICILLIN
  19. CALCIUM CARBONATE [Concomitant]
     Active Substance: CALCIUM CARBONATE
  20. VITAMIN D3 [Concomitant]
     Active Substance: CHOLECALCIFEROL
  21. LORATADINE [Concomitant]
     Active Substance: LORATADINE
  22. MIRTAZAPINE [Concomitant]
     Active Substance: MIRTAZAPINE
  23. POTASSIUM CHLORIDE [Concomitant]
     Active Substance: POTASSIUM CHLORIDE
  24. FLUCONAZOLE [Concomitant]
     Active Substance: FLUCONAZOLE

REACTIONS (4)
  - Tremor [Recovered/Resolved]
  - Hiccups [Recovered/Resolved]
  - Inguinal hernia [Not Recovered/Not Resolved]
  - Catheter site infection [Recovered/Resolved]
